FAERS Safety Report 7814929-5 (Version None)
Quarter: 2011Q4

REPORT INFORMATION
  Report Type: 
  Country: None (occurrence: None)
  Receive Date: 20111014
  Receipt Date: 20110928
  Transmission Date: 20120403
  Serious: Yes (Hospitalization)
  Sender: FDA-Public Use
  Company Number: AT-CELGENEUS-008-C5013-11072251

PATIENT
  Sex: Male
  Weight: 56.5 kg

DRUGS (10)
  1. COLOXYL SENNA [Concomitant]
     Route: 065
     Dates: start: 20110721
  2. PANTOPRAZOLE [Concomitant]
     Indication: GASTRITIS
     Dosage: 40 MILLIGRAM
     Route: 048
  3. LENALIDOMIDE [Suspect]
     Dosage: 2.5 MILLIGRAM
     Route: 048
     Dates: start: 20110523
  4. LENALIDOMIDE [Suspect]
     Dosage: 5 MILLIGRAM
     Route: 048
     Dates: start: 20110622, end: 20110719
  5. PREDNISOLONE [Concomitant]
     Indication: HAEMOLYSIS
     Dosage: 5 MILLIGRAM
     Route: 048
     Dates: start: 20110607
  6. SUPRADYN [Concomitant]
     Route: 065
     Dates: start: 20110823
  7. ESOMEPRAZOLE SODIUM [Concomitant]
     Indication: GASTRITIS
     Dosage: 20 MILLIGRAM
     Route: 048
  8. FOLIC ACID [Concomitant]
     Indication: HAEMOLYSIS
     Dosage: 5 MILLIGRAM
     Route: 048
     Dates: start: 20110406
  9. SOTALOL HCL [Concomitant]
     Indication: ATRIAL FIBRILLATION
     Dosage: 40 MILLIGRAM
     Route: 048
     Dates: start: 20110601, end: 20110720
  10. ASPIRIN [Concomitant]
     Indication: PROPHYLAXIS
     Dosage: 150 MILLIGRAM
     Route: 048
     Dates: start: 20110525, end: 20110721

REACTIONS (4)
  - DECREASED APPETITE [None]
  - FATIGUE [None]
  - GENERAL PHYSICAL HEALTH DETERIORATION [None]
  - ANAEMIA [None]
